FAERS Safety Report 5392221-9 (Version None)
Quarter: 2007Q3

REPORT INFORMATION
  Report Type: 
  Country: None (occurrence: None)
  Receive Date: 20070717
  Receipt Date: 20070717
  Transmission Date: 20080115
  Serious: Yes (Other)
  Sender: FDA-Public Use
  Company Number: None

PATIENT
  Sex: Female

DRUGS (1)
  1. SYMLIN [Suspect]
     Indication: TYPE 2 DIABETES MELLITUS
     Dosage: 120MCG  TID WITH MEALS  SQ
     Route: 058
     Dates: start: 20070705, end: 20070716

REACTIONS (1)
  - INCORRECT DRUG DOSAGE FORM ADMINISTERED [None]
